FAERS Safety Report 18958567 (Version 6)
Quarter: 2021Q3

REPORT INFORMATION
  Report Type: Report from Study
  Country: NL (occurrence: NL)
  Receive Date: 20210302
  Receipt Date: 20210916
  Transmission Date: 20211014
  Serious: Yes (Death, Hospitalization, Other)
  Sender: FDA-Public Use
  Company Number: NL-TAKEDA-2021TUS011649

PATIENT
  Age: 76 Year
  Sex: Female
  Weight: 70 kg

DRUGS (52)
  1. COAGULATION FACTOR VIII (PORCINE, RECOMBINANT) [Suspect]
     Active Substance: ANTIHEMOPHILIC FACTOR PORCINE, B-DOMAIN TRUNCATED RECOMBINANT
     Indication: HAEMORRHAGE
     Dosage: 3500 INTERNATIONAL UNIT
     Route: 042
     Dates: start: 20170512, end: 20170512
  2. COAGULATION FACTOR VIII (PORCINE, RECOMBINANT) [Suspect]
     Active Substance: ANTIHEMOPHILIC FACTOR PORCINE, B-DOMAIN TRUNCATED RECOMBINANT
     Indication: ACQUIRED HAEMOPHILIA
     Dosage: 1500 INTERNATIONAL UNIT, BID
     Route: 042
     Dates: start: 20170323, end: 20170323
  3. FUROSEMIDE. [Concomitant]
     Active Substance: FUROSEMIDE
     Dosage: 40 MILLIGRAM, QD
     Route: 042
     Dates: start: 20170517, end: 20170517
  4. AMPHOTERICIN B. [Concomitant]
     Active Substance: AMPHOTERICIN B
     Indication: PROPHYLAXIS
     Dosage: 10 MILLILITER, QID
     Route: 050
     Dates: start: 20170516, end: 20170522
  5. AMPHOTERICIN B. [Concomitant]
     Active Substance: AMPHOTERICIN B
     Dosage: 1 GRAM, QD
     Route: 050
     Dates: start: 20170523, end: 20170523
  6. COAGULATION FACTOR VIII (PORCINE, RECOMBINANT) [Suspect]
     Active Substance: ANTIHEMOPHILIC FACTOR PORCINE, B-DOMAIN TRUNCATED RECOMBINANT
     Indication: ACQUIRED HAEMOPHILIA
     Dosage: 1500 INTERNATIONAL UNIT, BID
     Route: 042
     Dates: start: 20170323, end: 20170323
  7. COAGULATION FACTOR VIII (PORCINE, RECOMBINANT) [Suspect]
     Active Substance: ANTIHEMOPHILIC FACTOR PORCINE, B-DOMAIN TRUNCATED RECOMBINANT
     Dosage: UNK UNK, BID
     Route: 042
     Dates: start: 20170523, end: 20170523
  8. POTASSIUM CHLORIDE. [Concomitant]
     Active Substance: POTASSIUM CHLORIDE
     Indication: BLOOD POTASSIUM DECREASED
     Dosage: 50 MILLILITER, QD
     Route: 042
     Dates: start: 20170513, end: 20170514
  9. POTASSIUM CHLORIDE. [Concomitant]
     Active Substance: POTASSIUM CHLORIDE
     Dosage: 50 MILLILITER, QD
     Route: 042
     Dates: start: 20170516, end: 20170516
  10. POTASSIUM CHLORIDE. [Concomitant]
     Active Substance: POTASSIUM CHLORIDE
     Dosage: 50 MILLILITER, BID
     Route: 042
     Dates: start: 20170517, end: 20170517
  11. FUROSEMIDE. [Concomitant]
     Active Substance: FUROSEMIDE
     Dosage: 40 MILLIGRAM, QD
     Route: 042
     Dates: start: 20170522, end: 20170522
  12. TOBRAMYCIN. [Concomitant]
     Active Substance: TOBRAMYCIN
     Indication: RESPIRATORY TRACT INFLAMMATION
     Dosage: 1 GRAM, BID
     Route: 050
     Dates: start: 20170516, end: 20170516
  13. COLISTIN [Concomitant]
     Active Substance: COLISTIN
     Dosage: 1 GRAM, TID
     Route: 050
     Dates: start: 20170517, end: 20170519
  14. COAGULATION FACTOR VIII (PORCINE, RECOMBINANT) [Suspect]
     Active Substance: ANTIHEMOPHILIC FACTOR PORCINE, B-DOMAIN TRUNCATED RECOMBINANT
     Dosage: 50
     Route: 065
     Dates: start: 20170512
  15. COAGULATION FACTOR VIII (PORCINE, RECOMBINANT) [Suspect]
     Active Substance: ANTIHEMOPHILIC FACTOR PORCINE, B-DOMAIN TRUNCATED RECOMBINANT
     Dosage: 50
     Route: 065
     Dates: start: 20170512
  16. COAGULATION FACTOR VIII (PORCINE, RECOMBINANT) [Suspect]
     Active Substance: ANTIHEMOPHILIC FACTOR PORCINE, B-DOMAIN TRUNCATED RECOMBINANT
     Dosage: 7 DOSAGE FORM
     Route: 065
     Dates: start: 20170512
  17. COAGULATION FACTOR VIII (PORCINE, RECOMBINANT) [Suspect]
     Active Substance: ANTIHEMOPHILIC FACTOR PORCINE, B-DOMAIN TRUNCATED RECOMBINANT
     Dosage: 7 DOSAGE FORM
     Route: 065
     Dates: start: 20170512
  18. RITUXIMAB. [Concomitant]
     Active Substance: RITUXIMAB
     Indication: ACQUIRED HAEMOPHILIA
     Dosage: UNK
  19. MAGNESIUM CHLORIDE. [Concomitant]
     Active Substance: MAGNESIUM CHLORIDE
     Indication: ELECTROLYTE IMBALANCE
     Dosage: 50 MILLILITER, QD
     Route: 042
     Dates: start: 20170516, end: 20170516
  20. COLISTIN [Concomitant]
     Active Substance: COLISTIN
     Dosage: 10 MILLILITER, QD
     Route: 050
     Dates: start: 20170523, end: 20170523
  21. COLISTIN [Concomitant]
     Active Substance: COLISTIN
     Dosage: 1 GRAM, QID
     Route: 050
     Dates: start: 20170520, end: 20170520
  22. COAGULATION FACTOR VIII (PORCINE, RECOMBINANT) [Suspect]
     Active Substance: ANTIHEMOPHILIC FACTOR PORCINE, B-DOMAIN TRUNCATED RECOMBINANT
     Dosage: 1000 INTERNATIONAL UNIT, BID
     Route: 042
     Dates: start: 20170513, end: 20170515
  23. PREDNISONE. [Concomitant]
     Active Substance: PREDNISONE
     Indication: ACQUIRED HAEMOPHILIA
     Dosage: UNK
  24. FUROSEMIDE. [Concomitant]
     Active Substance: FUROSEMIDE
     Dosage: 50 MILLIGRAM, QD
     Route: 042
     Dates: start: 20170514, end: 20170514
  25. HYDROCHLOROTHIAZIDE. [Concomitant]
     Active Substance: HYDROCHLOROTHIAZIDE
     Indication: DEHYDRATION
     Dosage: 25 MILLIGRAM, QD
     Route: 048
     Dates: start: 20170517, end: 20170523
  26. AMPHOTERICIN B. [Concomitant]
     Active Substance: AMPHOTERICIN B
     Dosage: 1 GRAM, BID
     Route: 050
     Dates: start: 20170516, end: 20170516
  27. AMPHOTERICIN B. [Concomitant]
     Active Substance: AMPHOTERICIN B
     Dosage: 1 GRAM, TID
     Route: 050
     Dates: start: 20170517, end: 20170519
  28. AMPHOTERICIN B. [Concomitant]
     Active Substance: AMPHOTERICIN B
     Dosage: 1 GRAM, TID
     Route: 050
     Dates: start: 20170521, end: 20170521
  29. COAGULATION FACTOR VIII (PORCINE, RECOMBINANT) [Suspect]
     Active Substance: ANTIHEMOPHILIC FACTOR PORCINE, B-DOMAIN TRUNCATED RECOMBINANT
     Dosage: UNK UNK, QID
     Route: 042
     Dates: start: 20170516, end: 20170522
  30. GLUCOSE LIQUID [Concomitant]
     Indication: ELECTROLYTE IMBALANCE
     Dosage: 20 MILLILITER, QD
     Route: 042
     Dates: start: 20170513, end: 20170513
  31. TOBRAMYCIN. [Concomitant]
     Active Substance: TOBRAMYCIN
     Indication: PROPHYLAXIS
     Dosage: 10 MILLILITER, QID
     Route: 050
     Dates: start: 20170516, end: 20170522
  32. TOBRAMYCIN. [Concomitant]
     Active Substance: TOBRAMYCIN
     Dosage: 1 GRAM, QID
     Route: 050
     Dates: start: 20170520, end: 20170520
  33. TOBRAMYCIN. [Concomitant]
     Active Substance: TOBRAMYCIN
     Dosage: 1 GRAM, TID
     Route: 050
     Dates: start: 20170521, end: 20170522
  34. ALBUMIN [Concomitant]
     Active Substance: ALBUMIN HUMAN
     Indication: PRE-EXISTING DISEASE
     Dosage: 20 GRAM, QD
     Route: 042
     Dates: start: 20170516, end: 20170516
  35. COLISTIN [Concomitant]
     Active Substance: COLISTIN
     Dosage: 1 GRAM, QD
     Route: 050
     Dates: start: 20170523, end: 20170523
  36. AMPHOTERICIN B. [Concomitant]
     Active Substance: AMPHOTERICIN B
     Indication: RESPIRATORY TRACT INFLAMMATION
     Dosage: 10 MILLILITER, QD
     Route: 050
     Dates: start: 20170523, end: 20170523
  37. COAGULATION FACTOR VIII (PORCINE, RECOMBINANT) [Suspect]
     Active Substance: ANTIHEMOPHILIC FACTOR PORCINE, B-DOMAIN TRUNCATED RECOMBINANT
     Dosage: UNK UNK, BID
     Route: 042
     Dates: start: 20170523, end: 20170523
  38. TOBRAMYCIN. [Concomitant]
     Active Substance: TOBRAMYCIN
     Dosage: 1 GRAM, QD
     Route: 050
     Dates: start: 20170523, end: 20170523
  39. COLISTIN [Concomitant]
     Active Substance: COLISTIN
     Dosage: 1 GRAM, TID
     Route: 050
     Dates: start: 20170521, end: 20170522
  40. COAGULATION FACTOR VIII (PORCINE, RECOMBINANT) [Suspect]
     Active Substance: ANTIHEMOPHILIC FACTOR PORCINE, B-DOMAIN TRUNCATED RECOMBINANT
     Indication: HAEMORRHAGE
     Dosage: 3500 INTERNATIONAL UNIT
     Route: 042
     Dates: start: 20170512, end: 20170512
  41. COAGULATION FACTOR VIII (PORCINE, RECOMBINANT) [Suspect]
     Active Substance: ANTIHEMOPHILIC FACTOR PORCINE, B-DOMAIN TRUNCATED RECOMBINANT
     Dosage: 1000 INTERNATIONAL UNIT, BID
     Route: 042
     Dates: start: 20170513, end: 20170515
  42. CYCLOPHOSPHAMIDE. [Concomitant]
     Active Substance: CYCLOPHOSPHAMIDE
     Indication: ACQUIRED HAEMOPHILIA
     Dosage: UNK
  43. COLISTIN [Concomitant]
     Active Substance: COLISTIN
     Indication: RESPIRATORY TRACT INFLAMMATION
     Dosage: 1 GRAM, BID
     Route: 050
     Dates: start: 20170516, end: 20170516
  44. AMPHOTERICIN B. [Concomitant]
     Active Substance: AMPHOTERICIN B
     Dosage: 1 GRAM, TID
     Route: 050
     Dates: start: 20170520, end: 20170520
  45. COAGULATION FACTOR VIII (PORCINE, RECOMBINANT) [Suspect]
     Active Substance: ANTIHEMOPHILIC FACTOR PORCINE, B-DOMAIN TRUNCATED RECOMBINANT
     Dosage: UNK UNK, QID
     Route: 042
     Dates: start: 20170516, end: 20170522
  46. FUROSEMIDE. [Concomitant]
     Active Substance: FUROSEMIDE
     Indication: POLYURIA
     Dosage: 20 MILLIGRAM, QD
     Route: 042
     Dates: start: 20170513, end: 20170516
  47. FUROSEMIDE. [Concomitant]
     Active Substance: FUROSEMIDE
     Dosage: 50 MILLIGRAM, QD
     Route: 042
     Dates: start: 20170516, end: 20170516
  48. FUROSEMIDE. [Concomitant]
     Active Substance: FUROSEMIDE
     Dosage: 50 MILLIGRAM, QD
     Route: 042
     Dates: start: 20170518, end: 20170519
  49. FUROSEMIDE. [Concomitant]
     Active Substance: FUROSEMIDE
     Dosage: 50 MILLIGRAM, QD
     Route: 042
     Dates: start: 20170522, end: 20170522
  50. TOBRAMYCIN. [Concomitant]
     Active Substance: TOBRAMYCIN
     Dosage: 1 GRAM, TID
     Route: 050
     Dates: start: 20170517, end: 20170519
  51. TOBRAMYCIN. [Concomitant]
     Active Substance: TOBRAMYCIN
     Dosage: 10 MILLILITER, QD
     Route: 050
     Dates: start: 20170523, end: 20170523
  52. COLISTIN [Concomitant]
     Active Substance: COLISTIN
     Indication: PROPHYLAXIS
     Dosage: 10 MILLILITER, QID
     Route: 050
     Dates: start: 20170516, end: 20170522

REACTIONS (25)
  - Fatigue [Not Recovered/Not Resolved]
  - Hypotension [Recovered/Resolved]
  - Abdominal pain [Recovered/Resolved]
  - Pupils unequal [Not Recovered/Not Resolved]
  - Hyperglycaemia [Recovered/Resolved]
  - Impaired gastric emptying [Recovered/Resolved]
  - Dysphagia [Not Recovered/Not Resolved]
  - Muscle contractions involuntary [Recovered/Resolved]
  - Clonus [Not Recovered/Not Resolved]
  - Duodenal ulcer haemorrhage [Fatal]
  - Gastrointestinal ulcer haemorrhage [Not Recovered/Not Resolved]
  - Restlessness [Recovered/Resolved]
  - Pyrexia [Not Recovered/Not Resolved]
  - Hyperhidrosis [Recovered/Resolved]
  - Tachypnoea [Not Recovered/Not Resolved]
  - Dysphonia [Recovered/Resolved]
  - Renal impairment [Recovered/Resolved]
  - Decubitus ulcer [Not Recovered/Not Resolved]
  - Diarrhoea [Recovered/Resolved]
  - Delirium [Not Recovered/Not Resolved]
  - Respiratory failure [Not Recovered/Not Resolved]
  - Dyspnoea [Not Recovered/Not Resolved]
  - Productive cough [Not Recovered/Not Resolved]
  - Pneumonia [Fatal]
  - Tremor [Not Recovered/Not Resolved]

NARRATIVE: CASE EVENT DATE: 20170404
